FAERS Safety Report 15603214 (Version 2)
Quarter: 2018Q4

REPORT INFORMATION
  Report Type: Report from Study
  Country: JP (occurrence: JP)
  Receive Date: 20181109
  Receipt Date: 20181219
  Transmission Date: 20190205
  Serious: Yes (Death, Hospitalization, Other)
  Sender: FDA-Public Use
  Company Number: JP-ASTRAZENECA-2018SF12157

PATIENT
  Age: 26103 Day
  Sex: Male

DRUGS (15)
  1. URSODEOXYCHOLIC ACID [Concomitant]
     Active Substance: URSODIOL
     Route: 048
     Dates: start: 201708
  2. PIARLE [Concomitant]
     Route: 048
     Dates: start: 20150925, end: 20151208
  3. SODIUM RABEPRAZOLE [Concomitant]
     Active Substance: RABEPRAZOLE SODIUM
     Route: 048
     Dates: start: 2018
  4. URSO [Concomitant]
     Active Substance: URSODIOL
     Route: 048
  5. PARIET [Concomitant]
     Active Substance: RABEPRAZOLE SODIUM
     Route: 048
     Dates: end: 2018
  6. MONILAC [Concomitant]
     Active Substance: LACTULOSE
     Route: 048
     Dates: start: 20170410
  7. FORXIGA [Suspect]
     Active Substance: DAPAGLIFLOZIN
     Indication: TYPE 2 DIABETES MELLITUS
     Route: 048
     Dates: start: 20150821
  8. RIFAXIMIN. [Concomitant]
     Active Substance: RIFAXIMIN
     Route: 048
     Dates: start: 20170526
  9. SPIRONOLACTONE. [Concomitant]
     Active Substance: SPIRONOLACTONE
     Route: 048
     Dates: start: 201701
  10. LIVACT [Concomitant]
     Active Substance: AMINO ACIDS
     Route: 048
     Dates: start: 20180421
  11. LICKLE [Concomitant]
     Active Substance: ISOLEUCINE\LEUCINE\VALINE
     Route: 048
     Dates: start: 201708, end: 2018
  12. JANUVIA [Concomitant]
     Active Substance: SITAGLIPTIN PHOSPHATE
     Indication: TYPE 2 DIABETES MELLITUS
     Route: 048
     Dates: start: 20151209, end: 20180118
  13. LUPRAC [Concomitant]
     Active Substance: TORSEMIDE
     Route: 048
     Dates: start: 201708, end: 20180514
  14. MAGMITT [Concomitant]
     Active Substance: MAGNESIUM OXIDE
     Indication: PROPHYLAXIS
     Route: 048
  15. LUPRAC [Concomitant]
     Active Substance: TORSEMIDE
     Route: 048
     Dates: start: 20180515

REACTIONS (13)
  - Oedema due to hepatic disease [Not Recovered/Not Resolved]
  - Blood triglycerides increased [Recovered/Resolved]
  - Hunger [Recovered/Resolved]
  - Oedema peripheral [Recovered/Resolved]
  - Pruritus [Recovered/Resolved]
  - Hypozincaemia [Not Recovered/Not Resolved]
  - Ascites [Not Recovered/Not Resolved]
  - Hepatic encephalopathy [Recovering/Resolving]
  - Hyperammonaemia [Not Recovered/Not Resolved]
  - Cellulitis [Recovering/Resolving]
  - Eczema asteatotic [Recovering/Resolving]
  - Hepatic cirrhosis [Fatal]
  - Tinea pedis [Recovering/Resolving]

NARRATIVE: CASE EVENT DATE: 20150828
